FAERS Safety Report 9587560 (Version 2)
Quarter: 2013Q4

REPORT INFORMATION
  Report Type: Report from Study
  Country: US (occurrence: US)
  Receive Date: 20131003
  Receipt Date: 20131003
  Transmission Date: 20140711
  Serious: Yes (Other)
  Sender: FDA-Public Use
  Company Number: US-US-EMD SERONO, INC.-7189882

PATIENT
  Age: 31 Year
  Sex: Female

DRUGS (2)
  1. REBIF [Suspect]
     Indication: MULTIPLE SCLEROSIS
     Route: 058
     Dates: start: 20111116, end: 20121223
  2. REBIF [Suspect]
     Route: 058

REACTIONS (3)
  - Abortion spontaneous [Unknown]
  - Headache [Unknown]
  - Maternal exposure timing unspecified [Unknown]
